FAERS Safety Report 8501448-6 (Version None)
Quarter: 2012Q3

REPORT INFORMATION
  Report Type: 
  Country: None (occurrence: None)
  Receive Date: 20120710
  Receipt Date: 20120706
  Transmission Date: 20120928
  Serious: Yes (Hospitalization)
  Sender: FDA-Public Use
  Company Number: FR-ROCHE-1076971

PATIENT
  Sex: Male
  Weight: 56 kg

DRUGS (4)
  1. METHYLPREDNISOLONE [Concomitant]
     Indication: PROPHYLAXIS
     Route: 042
     Dates: start: 20110531, end: 20120402
  2. POLARAMINE [Concomitant]
     Indication: PROPHYLAXIS
     Dosage: 1 AMPULE
     Route: 030
     Dates: start: 20110531, end: 20120402
  3. ACETAMINOPHEN [Concomitant]
     Indication: PROPHYLAXIS
     Route: 042
     Dates: start: 20110531, end: 20120402
  4. MABTHERA [Suspect]
     Indication: MANTLE CELL LYMPHOMA
     Route: 041
     Dates: start: 20110531, end: 20120402

REACTIONS (4)
  - AUTOIMMUNE THYROIDITIS [None]
  - GASTRIC ULCER [None]
  - IRIDOCYCLITIS [None]
  - BONE LESION [None]
